FAERS Safety Report 12251857 (Version 1)
Quarter: 2016Q2

REPORT INFORMATION
  Report Type: Spontaneous
  Country: GR (occurrence: GR)
  Receive Date: 20160411
  Receipt Date: 20160411
  Transmission Date: 20160815
  Serious: Yes (Other)
  Sender: FDA-Public Use
  Company Number: GR-CIPLA LTD.-2016GR03492

PATIENT

DRUGS (4)
  1. CISPLATIN. [Suspect]
     Active Substance: CISPLATIN
     Indication: NON-SMALL CELL LUNG CANCER
     Dosage: 70 MG/M2, ON DAY 1 OF SECOND AND SUBSEQUENT CYCLES, EVERY 21 DAYS
     Route: 065
  2. BORTEZOMIB [Suspect]
     Active Substance: BORTEZOMIB
     Indication: NON-SMALL CELL LUNG CANCER
     Dosage: 1 MG/M2, ON DAY 1 AND 8, EVERY 21 DAYS, FIRST CYCLE
     Route: 042
  3. BORTEZOMIB [Suspect]
     Active Substance: BORTEZOMIB
     Dosage: 1 MG/M2, ON DAY 1 AND 8, EVERY 21 DAYS, SUBSEQUENT CYCLE
     Route: 065
  4. GEMCITABINE [Suspect]
     Active Substance: GEMCITABINE\GEMCITABINE HYDROCHLORIDE
     Indication: NON-SMALL CELL LUNG CANCER
     Dosage: 1000 MG/M2, ON DAY 1 AND 8, ON DAY 1 OF SECOND AND SUBSEQUENT CYCLES, EVERY 21 DAYS
     Route: 065

REACTIONS (1)
  - Condition aggravated [Unknown]
